FAERS Safety Report 22090004 (Version 2)
Quarter: 2023Q2

REPORT INFORMATION
  Report Type: Report from Study
  Country: US (occurrence: US)
  Receive Date: 20230313
  Receipt Date: 20230419
  Transmission Date: 20230721
  Serious: No
  Sender: FDA-Public Use
  Company Number: US-ABBVIE-4269736

PATIENT
  Age: 34 Year
  Sex: Female

DRUGS (3)
  1. HUMIRA [Suspect]
     Active Substance: ADALIMUMAB
     Indication: Colitis ulcerative
     Route: 058
     Dates: start: 20160622
  2. HUMIRA [Suspect]
     Active Substance: ADALIMUMAB
     Route: 058
     Dates: start: 20160622
  3. HUMIRA [Suspect]
     Active Substance: ADALIMUMAB
     Route: 058

REACTIONS (11)
  - Colitis ulcerative [Unknown]
  - Colitis ulcerative [Recovered/Resolved]
  - Blood iron decreased [Unknown]
  - Blood oestrogen decreased [Unknown]
  - Progesterone decreased [Unknown]
  - Vitamin D decreased [Unknown]
  - Mental fatigue [Unknown]
  - Hypothyroidism [Unknown]
  - Heavy menstrual bleeding [Unknown]
  - Glucose tolerance impaired [Unknown]
  - Oligomenorrhoea [Unknown]

NARRATIVE: CASE EVENT DATE: 20221201
